FAERS Safety Report 11003455 (Version 1)
Quarter: 2015Q2

REPORT INFORMATION
  Report Type: Spontaneous
  Country: US (occurrence: US)
  Receive Date: 20150409
  Receipt Date: 20150409
  Transmission Date: 20150821
  Serious: Yes (Hospitalization)
  Sender: FDA-Public Use
  Company Number: US-RECORDATI RARE DISEASES-US-R13005-15-00028

PATIENT
  Age: 28 Year
  Sex: Male

DRUGS (1)
  1. METHAMPHETAMINE [Suspect]
     Active Substance: METHAMPHETAMINE
     Indication: PRODUCT USED FOR UNKNOWN INDICATION
     Route: 054

REACTIONS (16)
  - White blood cell count increased [None]
  - Rhabdomyolysis [None]
  - Renal injury [None]
  - Heart rate increased [None]
  - Pupils unequal [None]
  - Ventricular hypokinesia [None]
  - Head injury [None]
  - Multi-organ failure [Recovered/Resolved]
  - Seizure [Recovered/Resolved]
  - Drug abuse [Unknown]
  - Toxicity to various agents [None]
  - Blood pressure decreased [None]
  - Mental status changes [None]
  - Haemodialysis [None]
  - Overdose [Recovered/Resolved]
  - Intentional product misuse [Recovered/Resolved]
